FAERS Safety Report 7381083-6 (Version None)
Quarter: 2011Q1

REPORT INFORMATION
  Report Type: 
  Country: None (occurrence: None)
  Receive Date: 20110329
  Receipt Date: 20100528
  Transmission Date: 20110831
  Serious: No
  Sender: FDA-Public Use
  Company Number: US-AMGEN-KDL415254

PATIENT
  Age: 57 Year
  Sex: Male

DRUGS (4)
  1. FUROSEMIDE [Concomitant]
     Dosage: UNK UNK, UNK
  2. LISINOPRIL [Concomitant]
     Dosage: UNK UNK, UNK
  3. SENSIPAR [Suspect]
     Indication: PRODUCT USED FOR UNKNOWN INDICATION
     Dosage: 30 MG, QD
     Dates: start: 20100129
  4. ALLOPURINOL [Concomitant]
     Dosage: UNK UNK, UNK

REACTIONS (4)
  - DYSPNOEA [None]
  - FATIGUE [None]
  - HICCUPS [None]
  - DYSGEUSIA [None]
